FAERS Safety Report 15886229 (Version 2)
Quarter: 2019Q1

REPORT INFORMATION
  Report Type: Not Available
  Country: US (occurrence: US)
  Receive Date: 20190129
  Receipt Date: 20190206
  Transmission Date: 20190417
  Serious: Yes (Death)
  Sender: FDA-Public Use
  Company Number: US-NEUROCRINE BIOSCIENCES INC.-2019NBI00271

PATIENT
  Age: 86 Year
  Sex: Female

DRUGS (1)
  1. INGREZZA [Suspect]
     Active Substance: VALBENAZINE
     Indication: TARDIVE DYSKINESIA
     Route: 048
     Dates: start: 20181221, end: 20190107

REACTIONS (2)
  - Ill-defined disorder [Unknown]
  - Respiratory tract infection [Fatal]

NARRATIVE: CASE EVENT DATE: 20190104
